FAERS Safety Report 25467877 (Version 1)
Quarter: 2025Q2

REPORT INFORMATION
  Report Type: Report from Study
  Country: US (occurrence: US)
  Receive Date: 20250623
  Receipt Date: 20250623
  Transmission Date: 20250717
  Serious: Yes (Other)
  Sender: MALLINCKRODT
  Company Number: US-MALLINCKRODT-MNK202503620

PATIENT
  Sex: Female

DRUGS (3)
  1. CORTICOTROPIN [Suspect]
     Active Substance: CORTICOTROPIN
     Indication: Systemic lupus erythematosus
  2. METFORMIN [Concomitant]
     Active Substance: METFORMIN HYDROCHLORIDE
  3. BENLYSTA [Concomitant]
     Active Substance: BELIMUMAB

REACTIONS (6)
  - Hip surgery [Unknown]
  - Foot operation [Unknown]
  - Post procedural complication [Unknown]
  - Arthralgia [Unknown]
  - Pain in extremity [Unknown]
  - Joint swelling [Unknown]
